FAERS Safety Report 6705390-2 (Version None)
Quarter: 2010Q2

REPORT INFORMATION
  Report Type: 
  Country: None (occurrence: None)
  Receive Date: 20100503
  Receipt Date: 20100427
  Transmission Date: 20101027
  Serious: Yes (Other)
  Sender: FDA-Public Use
  Company Number: US-BIOGENIDEC-2010BI014094

PATIENT
  Age: 38 Year
  Sex: Female

DRUGS (2)
  1. TYSABRI [Suspect]
     Indication: MULTIPLE SCLEROSIS
     Route: 042
     Dates: start: 20090423, end: 20090929
  2. TYSABRI [Suspect]
     Route: 042
     Dates: start: 20071023, end: 20090115

REACTIONS (2)
  - ABORTION SPONTANEOUS [None]
  - PREGNANCY [None]
